FAERS Safety Report 10144900 (Version 1)
Quarter: 2014Q2

REPORT INFORMATION
  Report Type: Spontaneous
  Country: US (occurrence: US)
  Receive Date: 20140430
  Receipt Date: 20140430
  Transmission Date: 20141212
  Serious: No
  Sender: FDA-Public Use
  Company Number: US-SA-2013SA103199

PATIENT
  Sex: Male
  Weight: 68.04 kg

DRUGS (6)
  1. DEMEROL [Suspect]
     Route: 065
  2. MULTIVITAMINS [Concomitant]
  3. CALCIUM [Concomitant]
  4. LISINOPRIL [Concomitant]
  5. HYDROCHLOROTHIAZIDE [Concomitant]
  6. ENTECAVIR [Concomitant]

REACTIONS (1)
  - Hypersensitivity [Unknown]
